FAERS Safety Report 19687437 (Version 10)
Quarter: 2023Q4

REPORT INFORMATION
  Report Type: Spontaneous
  Country: US (occurrence: US)
  Receive Date: 20210811
  Receipt Date: 20231208
  Transmission Date: 20240109
  Serious: No
  Sender: FDA-Public Use
  Company Number: US-PFIZER INC-2021555809

PATIENT
  Age: 64 Year
  Sex: Female

DRUGS (3)
  1. IBRANCE [Suspect]
     Active Substance: PALBOCICLIB
     Indication: Breast cancer female
     Dosage: ONCE DAILY, 2 WEEKS ON AND 2 WEEKS OFF REPEAT
     Route: 048
     Dates: end: 20230107
  2. IBRANCE [Suspect]
     Active Substance: PALBOCICLIB
     Dosage: 125 MG
  3. FASLODEX [Concomitant]
     Active Substance: FULVESTRANT

REACTIONS (2)
  - White blood cell count abnormal [Unknown]
  - Nausea [Unknown]
